FAERS Safety Report 14516046 (Version 1)
Quarter: 2018Q1

REPORT INFORMATION
  Report Type: Report from Study
  Country: US (occurrence: US)
  Receive Date: 20180211
  Receipt Date: 20180211
  Transmission Date: 20180509
  Serious: No
  Sender: FDA-Public Use
  Company Number: US-PUMA BIOTECHNOLOGY, LTD.-2017US015741

PATIENT

DRUGS (2)
  1. NERLYNX [Suspect]
     Active Substance: NERATINIB
     Indication: BREAST CANCER
     Dosage: 120 MG, BID
     Route: 048
     Dates: start: 20171110
  2. NERLYNX [Suspect]
     Active Substance: NERATINIB
     Dosage: 240 MG, DAILY
     Route: 048
     Dates: start: 20171114

REACTIONS (13)
  - Headache [Unknown]
  - Diarrhoea [Recovering/Resolving]
  - Nasal dryness [Recovered/Resolved]
  - Constipation [Unknown]
  - Nasal dryness [Unknown]
  - Dry mouth [Unknown]
  - Abdominal pain [Unknown]
  - Sneezing [Unknown]
  - Decreased appetite [Unknown]
  - Drug dose omission [Unknown]
  - Incorrect dose administered [Recovered/Resolved]
  - Paranasal sinus hyposecretion [Recovered/Resolved]
  - Gastrointestinal sounds abnormal [Unknown]

NARRATIVE: CASE EVENT DATE: 2017
